FAERS Safety Report 9438125 (Version 1)
Quarter: 2013Q3

REPORT INFORMATION
  Report Type: Spontaneous
  Country: US (occurrence: US)
  Receive Date: 20130802
  Receipt Date: 20130802
  Transmission Date: 20140515
  Serious: No
  Sender: FDA-Public Use
  Company Number: US-BRISTOL-MYERS SQUIBB COMPANY-16839052

PATIENT
  Age: 73 Year
  Sex: Female
  Weight: 111.56 kg

DRUGS (3)
  1. COUMADIN TABS 5 MG [Suspect]
     Indication: MITRAL VALVE REPLACEMENT
     Dosage: 24NOV2010?7.5/3 DAYS, 5MG REST
     Route: 048
     Dates: start: 20030317
  2. SYNTHROID [Concomitant]
     Dates: start: 20091104
  3. BENICAR HCT [Concomitant]
     Dosage: 1DF:1/2 TABS(DOSE-40-25MG)
     Route: 048

REACTIONS (2)
  - Renal disorder [Unknown]
  - Sinusitis [Unknown]
